FAERS Safety Report 15195779 (Version 1)
Quarter: 2018Q3

REPORT INFORMATION
  Report Type: Spontaneous
  Country: US (occurrence: US)
  Receive Date: 20180725
  Receipt Date: 20180725
  Transmission Date: 20181010
  Serious: No
  Sender: FDA-Public Use
  Company Number: US-PFIZER INC-2018292020

PATIENT
  Age: 46 Year
  Sex: Female
  Weight: 108.84 kg

DRUGS (2)
  1. LYRICA [Suspect]
     Active Substance: PREGABALIN
     Indication: PSORIATIC ARTHROPATHY
     Dosage: 150 MG, TWICE A DAY
     Dates: end: 20180714
  2. LYRICA [Suspect]
     Active Substance: PREGABALIN
     Indication: ARTHRALGIA

REACTIONS (10)
  - Hot flush [Unknown]
  - Malaise [Unknown]
  - Headache [Unknown]
  - Insomnia [Unknown]
  - Withdrawal syndrome [Not Recovered/Not Resolved]
  - Asthenia [Unknown]
  - Muscle twitching [Unknown]
  - Drug ineffective for unapproved indication [Unknown]
  - Feeling abnormal [Unknown]
  - Pruritus [Unknown]

NARRATIVE: CASE EVENT DATE: 20180715
